FAERS Safety Report 8066896-X (Version None)
Quarter: 2012Q1

REPORT INFORMATION
  Report Type: 
  Country: None (occurrence: None)
  Receive Date: 20120124
  Receipt Date: 20120118
  Transmission Date: 20120608
  Serious: Yes (Hospitalization)
  Sender: FDA-Public Use
  Company Number: PHHY2012IT004287

PATIENT
  Sex: Female

DRUGS (3)
  1. DELORAZEPAM [Suspect]
     Dosage: UNK
  2. CLOPIDOGREL [Suspect]
     Dosage: UNK
  3. FUROSEMIDE [Suspect]
     Dosage: UNK

REACTIONS (2)
  - HALLUCINATION, VISUAL [None]
  - CONFUSIONAL STATE [None]
